FAERS Safety Report 12541961 (Version 1)
Quarter: 2016Q3

REPORT INFORMATION
  Report Type: Spontaneous
  Country: US (occurrence: US)
  Receive Date: 20160708
  Receipt Date: 20160708
  Transmission Date: 20161109
  Serious: No
  Sender: FDA-Public Use
  Company Number: US-ASTRAZENECA-2016SE52048

PATIENT
  Age: 70 Year
  Sex: Male

DRUGS (2)
  1. BYDUREON [Suspect]
     Active Substance: EXENATIDE
     Indication: TYPE 2 DIABETES MELLITUS
     Route: 065
     Dates: start: 20160510
  2. VICTOZA [Concomitant]
     Active Substance: LIRAGLUTIDE

REACTIONS (1)
  - Blood glucose abnormal [Not Recovered/Not Resolved]
